FAERS Safety Report 25618919 (Version 5)
Quarter: 2025Q4

REPORT INFORMATION
  Report Type: Spontaneous
  Country: JP (occurrence: JP)
  Receive Date: 20250729
  Receipt Date: 20251103
  Transmission Date: 20260118
  Serious: Yes (Hospitalization, Other)
  Sender: NOVO NORDISK
  Company Number: JP-NOVOPROD-1483921

PATIENT
  Age: 49 Year
  Sex: Female
  Weight: 41 kg

DRUGS (9)
  1. INSULIN ICODEC [Suspect]
     Active Substance: INSULIN ICODEC
     Indication: Pancreatogenous diabetes
     Dosage: 70 IU, QW
     Route: 058
     Dates: start: 20250711, end: 20250717
  2. OZEMPIC [Concomitant]
     Active Substance: SEMAGLUTIDE
     Indication: Pancreatogenous diabetes
     Dosage: 0.5 MG, QW
     Route: 058
     Dates: start: 20240222
  3. INDERAL [Concomitant]
     Active Substance: PROPRANOLOL HYDROCHLORIDE
     Indication: Sinus tachycardia
     Dosage: 20 MG, QD
     Route: 048
     Dates: start: 202502
  4. CALCIUM POLYSTYRENE SULFONATE [Concomitant]
     Active Substance: CALCIUM POLYSTYRENE SULFONATE
     Indication: Hyperkalaemia
     Dosage: 2 DF/DAY
     Route: 048
     Dates: start: 20250514
  5. POLAPREZINC [Concomitant]
     Active Substance: POLAPREZINC
     Indication: Zinc deficiency
     Dosage: 150 MG, QD
     Route: 048
     Dates: start: 20250606
  6. SENNOSIDES [Concomitant]
     Active Substance: SENNOSIDES
     Indication: Constipation
     Dosage: 12 MG, QD
     Route: 048
     Dates: start: 20250612
  7. DAYVIGO [Concomitant]
     Active Substance: LEMBOREXANT
     Indication: Insomnia
     Dosage: 5 MG, QD
     Route: 048
     Dates: start: 20250606, end: 20250707
  8. TECFIDERA [Concomitant]
     Active Substance: DIMETHYL FUMARATE
     Indication: Multiple sclerosis
     Dosage: 480 MG, QD
     Route: 048
     Dates: end: 20250708
  9. PANCRELIPASE [Concomitant]
     Active Substance: PANCRELIPASE
     Indication: Pancreatitis chronic
     Dosage: 600 MG, QD
     Dates: start: 20250609, end: 20250630

REACTIONS (1)
  - Hepatic function abnormal [Recovered/Resolved]

NARRATIVE: CASE EVENT DATE: 20250716
